FAERS Safety Report 9706673 (Version 1)
Quarter: 2013Q4

REPORT INFORMATION
  Report Type: Spontaneous
  Country: DE (occurrence: DE)
  Receive Date: 20131125
  Receipt Date: 20131125
  Transmission Date: 20140711
  Serious: Yes (Life-Threatening, Hospitalization)
  Sender: FDA-Public Use
  Company Number: DE-BAYER-2013-139651

PATIENT
  Age: 38 Year
  Sex: Female

DRUGS (1)
  1. MIRENA [Suspect]
     Indication: MENORRHAGIA
     Dosage: 20 MG/24HR, CONT
     Route: 015
     Dates: start: 2010

REACTIONS (9)
  - Circulatory collapse [Recovered/Resolved]
  - Pneumonia [Recovering/Resolving]
  - Pulmonary embolism [Recovering/Resolving]
  - Syncope [Recovered/Resolved]
  - Loss of consciousness [Recovered/Resolved]
  - Vulvovaginal candidiasis [None]
  - Febrile infection [None]
  - Dyspnoea at rest [Recovering/Resolving]
  - Sinus tachycardia [Recovering/Resolving]
